FAERS Safety Report 21033079 (Version 7)
Quarter: 2025Q2

REPORT INFORMATION
  Report Type: Report from Study
  Country: US (occurrence: US)
  Receive Date: 20220701
  Receipt Date: 20250423
  Transmission Date: 20250716
  Serious: Yes (Life-Threatening, Hospitalization, Other)
  Sender: TAKEDA
  Company Number: US-TAKEDA-2022TUS037234

PATIENT
  Age: 37 Year
  Sex: Female
  Weight: 77.098 kg

DRUGS (13)
  1. HUMAN IMMUNOGLOBULIN G [Interacting]
     Active Substance: HUMAN IMMUNOGLOBULIN G
     Indication: Primary immunodeficiency syndrome
     Dosage: 10 GRAM, 1/WEEK
     Dates: start: 201704
  2. HUMAN IMMUNOGLOBULIN G [Interacting]
     Active Substance: HUMAN IMMUNOGLOBULIN G
     Indication: Immunodeficiency common variable
  3. ANNOVERA [Interacting]
     Active Substance: ETHINYL ESTRADIOL\SEGESTERONE ACETATE
     Indication: Contraception
  4. ANNOVERA [Interacting]
     Active Substance: ETHINYL ESTRADIOL\SEGESTERONE ACETATE
     Indication: Dysmenorrhoea
     Dosage: UNK, Q4WEEKS
     Dates: start: 202103, end: 20230708
  5. ANNOVERA [Interacting]
     Active Substance: ETHINYL ESTRADIOL\SEGESTERONE ACETATE
     Indication: Heavy menstrual bleeding
  6. FISH OIL [Concomitant]
     Active Substance: FISH OIL
  7. HERBALS\TURMERIC [Concomitant]
     Active Substance: HERBALS\TURMERIC
  8. FLONASE [Concomitant]
     Active Substance: FLUTICASONE PROPIONATE
  9. TRELEGY ELLIPTA [Concomitant]
     Active Substance: FLUTICASONE FUROATE\UMECLIDINIUM BROMIDE\VILANTEROL TRIFENATATE
  10. PROAIR HFA [Concomitant]
     Active Substance: ALBUTEROL SULFATE
  11. ALLEGRA [Concomitant]
     Active Substance: FEXOFENADINE HYDROCHLORIDE
  12. ZYRTEC [Concomitant]
     Active Substance: CETIRIZINE HYDROCHLORIDE
  13. CLARITIN [Concomitant]
     Active Substance: LORATADINE

REACTIONS (12)
  - Drug interaction [Unknown]
  - Cerebral venous sinus thrombosis [Recovered/Resolved]
  - Thalamic stroke [Recovering/Resolving]
  - Basal ganglia stroke [Recovering/Resolving]
  - Brain stem stroke [Recovering/Resolving]
  - Off label use [Unknown]
  - Insurance issue [Unknown]
  - Product use issue [Unknown]
  - Sinusitis [Unknown]
  - Asthma [Unknown]
  - Swelling [Unknown]
  - Fatigue [Unknown]

NARRATIVE: CASE EVENT DATE: 20221101
